FAERS Safety Report 5088881-2 (Version None)
Quarter: 2006Q3

REPORT INFORMATION
  Report Type: 
  Country: None (occurrence: None)
  Receive Date: 20060825
  Receipt Date: 20060816
  Transmission Date: 20061208
  Serious: Yes (Hospitalization)
  Sender: FDA-Public Use
  Company Number: GB-MERCK-0608USA04398

PATIENT
  Age: 81 Year

DRUGS (4)
  1. PRINIVIL [Suspect]
     Indication: HYPOTENSION
     Route: 048
     Dates: start: 19990101
  2. ASPIRIN [Suspect]
     Indication: CEREBROVASCULAR ACCIDENT
     Route: 048
     Dates: start: 19990101, end: 20060418
  3. DIAZEPAM [Concomitant]
     Route: 048
     Dates: start: 19990101
  4. RANITIDINE [Concomitant]
     Route: 048
     Dates: start: 20000101, end: 20060418

REACTIONS (2)
  - GASTRIC ULCER [None]
  - MELAENA [None]
